FAERS Safety Report 8572707-6 (Version None)
Quarter: 2012Q3

REPORT INFORMATION
  Report Type: 
  Country: None (occurrence: None)
  Receive Date: 20120806
  Receipt Date: 20120731
  Transmission Date: 20120928
  Serious: Yes (Other)
  Sender: FDA-Public Use
  Company Number: US-PFIZER INC-2012186815

PATIENT
  Sex: Female

DRUGS (3)
  1. NORVASC [Suspect]
     Dosage: UNK
  2. CELEBREX [Suspect]
     Dosage: UNK
  3. ACCUPRIL [Suspect]
     Dosage: UNK

REACTIONS (2)
  - NEPHROLITHIASIS [None]
  - CARDIAC PACEMAKER INSERTION [None]
